FAERS Safety Report 10736763 (Version 7)
Quarter: 2016Q1

REPORT INFORMATION
  Report Type: Spontaneous
  Country: US (occurrence: US)
  Receive Date: 20150126
  Receipt Date: 20160111
  Transmission Date: 20160525
  Serious: Yes (Hospitalization)
  Sender: FDA-Public Use
  Company Number: US-PFIZER INC-2015026813

PATIENT
  Age: 80 Year
  Sex: Male
  Weight: 75 kg

DRUGS (21)
  1. SUTENT [Suspect]
     Active Substance: SUNITINIB MALATE
     Dosage: 37.5 MG, CYCLIC (12.5 MG CAP 3 CAP DAILY FOR 2 WKS + 1 WK OFF)
     Route: 048
     Dates: start: 20150810, end: 20150902
  2. TRAVATAN [Concomitant]
     Active Substance: TRAVOPROST
     Indication: GLAUCOMA
     Dosage: 0.004% 1 DROP RIGHT EYE AT NIGHT
  3. PRADAXA [Concomitant]
     Active Substance: DABIGATRAN ETEXILATE MESYLATE
     Dosage: 150 MG, 2X/DAY
     Route: 048
  4. AMIODARONE [Concomitant]
     Active Substance: AMIODARONE
     Indication: CARDIAC DISORDER
     Dosage: 200 MG, 1X/DAY AT NIGHT
     Route: 048
  5. TRAVATAN [Concomitant]
     Active Substance: TRAVOPROST
     Dosage: UNK
  6. LOSARTAN. [Concomitant]
     Active Substance: LOSARTAN
     Indication: BLOOD PRESSURE MEASUREMENT
     Dosage: 25 MG, 1X/DAY
     Route: 048
  7. HYDROCODONE BITARTRATE AND ACETAMINOPHEN [Concomitant]
     Active Substance: ACETAMINOPHEN\HYDROCODONE BITARTRATE
     Indication: PAIN
     Dosage: UNK, (HYDROCODONE BITARTRATE 5MG, PARACETAMOL325 MG) (1 TO 2 TABLET EVERY SIX HRS PRN)
     Route: 048
  8. LEVOTHYROXINE. [Concomitant]
     Active Substance: LEVOTHYROXINE
     Indication: THYROID DISORDER
     Dosage: 50 ?G, 1X/DAY
  9. PANTOPRAZOLE [Concomitant]
     Active Substance: PANTOPRAZOLE SODIUM
     Dosage: UNK
  10. CARBOXYMETHYLCELLULOSE SODIUM. [Concomitant]
     Active Substance: CARBOXYMETHYLCELLULOSE SODIUM
     Indication: CATARACT
     Dosage: 1 DROP AT NIGHT IN LEFT EYE
  11. CARBOXYMETHYLCELLULOSE SODIUM. [Concomitant]
     Active Substance: CARBOXYMETHYLCELLULOSE SODIUM
     Dosage: UNK
  12. CARVEDILOL. [Concomitant]
     Active Substance: CARVEDILOL
     Dosage: 50 MG, DAILY (25MG TWO TABS DAILY)
     Route: 048
  13. MAGNESIUM ASPARTATE HCL [Concomitant]
     Dosage: UNK, 1X/DAY  (122 MG (1,230 MG); DIRECTIONS: 1 PACK QD)
  14. SUTENT [Suspect]
     Active Substance: SUNITINIB MALATE
     Dosage: UNK UNK, CYCLIC (TWO WEEKS ON AND TWO WEEKS OFF)
  15. AZOPT [Concomitant]
     Active Substance: BRINZOLAMIDE
     Dosage: UNK (1%)
  16. LEVOTHYROXINE. [Concomitant]
     Active Substance: LEVOTHYROXINE
     Dosage: 112 ?G, 1X/DAY
  17. PANTOPRAZOLE [Concomitant]
     Active Substance: PANTOPRAZOLE SODIUM
     Indication: CARDIAC DISORDER
     Dosage: 20 MG, 1X/DAY (ONCE AT NIGHT)
  18. LEVOTHYROXINE. [Concomitant]
     Active Substance: LEVOTHYROXINE
     Dosage: 75 ?G, 1X/DAY
  19. SUTENT [Suspect]
     Active Substance: SUNITINIB MALATE
     Indication: RENAL CANCER
     Dosage: 25 MG, 2X/DAY (ONE AT BREAKFAST AND ONE AT SUPPER, TOTAL 50 MG DAILY)
     Dates: start: 20140630
  20. SUTENT [Suspect]
     Active Substance: SUNITINIB MALATE
     Dosage: 37.5MG, (12.5X3) CYCLIC (DAILY, 2 WEEKS ON AND 1 WEEK OFF)
     Route: 048
     Dates: start: 201406, end: 2015
  21. HYDROCODONE BITARTRATE AND ACETAMINOPHEN [Concomitant]
     Active Substance: ACETAMINOPHEN\HYDROCODONE BITARTRATE
     Dosage: (HYDROCODONE BITARTRATE 5MG, PARACETAMOL325 MG) 2X/DAY 1TABLET IN THE MOORNING AND NIGHT
     Route: 048
     Dates: start: 20150902

REACTIONS (11)
  - Hypersomnia [Recovered/Resolved]
  - Glossodynia [Recovered/Resolved]
  - Renal cancer [Not Recovered/Not Resolved]
  - Hypertension [Recovering/Resolving]
  - Pain in extremity [Not Recovered/Not Resolved]
  - Decreased appetite [Not Recovered/Not Resolved]
  - Weight decreased [Unknown]
  - Pain [Not Recovered/Not Resolved]
  - Disease progression [Not Recovered/Not Resolved]
  - Diarrhoea [Recovered/Resolved]
  - Nausea [Not Recovered/Not Resolved]

NARRATIVE: CASE EVENT DATE: 20131230
